FAERS Safety Report 4805660-9 (Version None)
Quarter: 2005Q4

REPORT INFORMATION
  Report Type: 
  Country: None (occurrence: None)
  Receive Date: 20051021
  Receipt Date: 20050627
  Transmission Date: 20060501
  Serious: Yes (Hospitalization)
  Sender: FDA-Public Use
  Company Number: FR-ROCHE-409021

PATIENT
  Age: 63 Year
  Sex: Female

DRUGS (9)
  1. CELLCEPT [Suspect]
     Indication: PROPHYLAXIS AGAINST TRANSPLANT REJECTION
     Route: 048
     Dates: start: 20030615, end: 20050605
  2. PROGRAF [Suspect]
     Indication: DRUG USE FOR UNKNOWN INDICATION
     Route: 048
     Dates: start: 20030615
  3. PROGRAF [Suspect]
     Route: 048
     Dates: end: 20050605
  4. ROCALTROL [Concomitant]
  5. ACTONEL [Concomitant]
  6. VASTEN [Concomitant]
  7. COZAAR [Concomitant]
  8. DIAMICRON [Concomitant]
  9. ACTOS [Concomitant]

REACTIONS (5)
  - COMA [None]
  - CONVULSION [None]
  - EPILEPSY [None]
  - HYPERAMMONAEMIA [None]
  - TREMOR [None]
